FAERS Safety Report 9436624 (Version 1)
Quarter: 2013Q3

REPORT INFORMATION
  Report Type: Spontaneous
  Country: US (occurrence: None)
  Receive Date: 20130801
  Receipt Date: 20130801
  Transmission Date: 20140515
  Serious: No
  Sender: FDA-Public Use
  Company Number: None

PATIENT
  Age: 36 Year
  Sex: Female
  Weight: 67.59 kg

DRUGS (1)
  1. MIRENA [Suspect]
     Indication: CONTRACEPTION
     Dosage: 52MG INTRA-UTERINE
     Dates: start: 20110721, end: 20130726

REACTIONS (3)
  - Pelvic pain [None]
  - Medical device complication [None]
  - Device dislocation [None]
